FAERS Safety Report 9205226 (Version 1)
Quarter: 2013Q2

REPORT INFORMATION
  Report Type: Spontaneous
  Country: US (occurrence: US)
  Receive Date: 20130402
  Receipt Date: 20130402
  Transmission Date: 20140414
  Serious: No
  Sender: FDA-Public Use
  Company Number: US-BAYER-2013-041892

PATIENT
  Age: 87 Year
  Sex: Female
  Weight: 54.42 kg

DRUGS (3)
  1. ALEVE TABLET [Suspect]
     Indication: ANALGESIC THERAPY
     Dosage: 2 DF, BID
     Route: 048
     Dates: start: 20130316
  2. NAMENDA [Concomitant]
  3. ARICEPT [Concomitant]

REACTIONS (1)
  - Overdose [None]
